FAERS Safety Report 8737893 (Version 7)
Quarter: 2013Q2

REPORT INFORMATION
  Report Type: Report from Study
  Country: JP (occurrence: JP)
  Receive Date: 20120823
  Receipt Date: 20130618
  Transmission Date: 20140414
  Serious: Yes (Hospitalization, Other)
  Sender: FDA-Public Use
  Company Number: JP-009507513-2012SP025632

PATIENT
  Age: 61 Year
  Sex: Male
  Weight: 68 kg

DRUGS (11)
  1. PEGINTRON [Suspect]
     Indication: CHRONIC HEPATITIS C
     Dosage: 1.5 MICROGRAM PER KILOGRAM, QW
     Route: 058
     Dates: start: 20120306, end: 20120313
  2. PEGINTRON [Suspect]
     Dosage: 0.75 MICROGRAM PER KILOGRAM, QW
     Route: 058
     Dates: start: 20120320, end: 20120501
  3. PEGINTRON [Suspect]
     Dosage: 0.75 MICROGRAM PER KILOGRAM, QW,DAILY DOSE UNKNOWN
     Route: 058
     Dates: start: 20120515
  4. REBETOL [Suspect]
     Indication: CHRONIC HEPATITIS C
     Dosage: 800 MG, QD
     Route: 048
     Dates: start: 20120305, end: 20120507
  5. REBETOL [Suspect]
     Dosage: 800 MG, QD
     Route: 048
     Dates: start: 20120515
  6. TELAVIC [Suspect]
     Indication: CHRONIC HEPATITIS C
     Dosage: 2250 MG, QD
     Route: 048
     Dates: start: 20120306, end: 20120507
  7. TELAVIC [Suspect]
     Dosage: 2250 MG, QD
     Route: 048
     Dates: start: 20120515, end: 20120604
  8. PARIET [Concomitant]
     Indication: GASTROOESOPHAGEAL REFLUX DISEASE
     Dosage: 10 MG, QD, POR
     Route: 048
     Dates: start: 20091019
  9. ATARAX (HYDROXYZINE HYDROCHLORIDE) [Concomitant]
     Indication: DERMATITIS ALLERGIC
     Dosage: 20 MG, QD, POR
     Route: 048
     Dates: start: 20120305
  10. ALLEGRA [Concomitant]
     Indication: DERMATITIS ALLERGIC
     Dosage: 120 MG, QD,FORMULATION:POR
     Route: 048
     Dates: start: 20120305
  11. [THERAPY UNSPECIFIED] [Concomitant]
     Indication: DERMATITIS ALLERGIC
     Dosage: Q.S./DAY
     Route: 061
     Dates: start: 20120305

REACTIONS (3)
  - Blood uric acid increased [Recovered/Resolved]
  - Platelet count decreased [Recovering/Resolving]
  - Decreased appetite [Recovered/Resolved]
